FAERS Safety Report 5292102-5 (Version None)
Quarter: 2007Q2

REPORT INFORMATION
  Report Type: 
  Country: None (occurrence: None)
  Receive Date: 20070403
  Receipt Date: 20070320
  Transmission Date: 20071010
  Serious: Yes (Other)
  Sender: FDA-Public Use
  Company Number: GXKR2007JP02737

PATIENT
  Age: 53 Year
  Sex: Female

DRUGS (4)
  1. METHYLPREDNISOLONE [Suspect]
     Indication: DERMATOMYOSITIS
     Dosage: 1000 MG, BID, INTRAVENOUS
     Route: 042
  2. PREDNISOLONE [Suspect]
     Indication: DERMATOMYOSITIS
     Dosage: SEE IMAGE
     Dates: start: 20030501
  3. METHOTREXATE [Suspect]
     Indication: DERMATOMYOSITIS
     Dosage: 7.5 MG WEEKLY
     Dates: start: 20030401
  4. VOGLIBOSE (VOGLIBOSE) [Suspect]
     Indication: DERMATOMYOSITIS
     Dosage: 0.6 MG DAILY

REACTIONS (14)
  - ABDOMINAL TENDERNESS [None]
  - ALDOLASE INCREASED [None]
  - BLOOD CREATINE PHOSPHOKINASE INCREASED [None]
  - DERMATOMYOSITIS [None]
  - DIABETES MELLITUS [None]
  - DYSPHAGIA [None]
  - GENERAL PHYSICAL HEALTH DETERIORATION [None]
  - MUSCULAR WEAKNESS [None]
  - NAUSEA [None]
  - PNEUMATOSIS INTESTINALIS [None]
  - PNEUMOMEDIASTINUM [None]
  - PNEUMOPERITONEUM [None]
  - RASH [None]
  - SUBCUTANEOUS EMPHYSEMA [None]
